FAERS Safety Report 7596892-8 (Version None)
Quarter: 2011Q3

REPORT INFORMATION
  Report Type: 
  Country: None (occurrence: None)
  Receive Date: 20110708
  Receipt Date: 20110705
  Transmission Date: 20111222
  Serious: Yes (Other)
  Sender: FDA-Public Use
  Company Number: CH-PFIZER INC-2011149721

PATIENT
  Age: 20 Year
  Sex: Female

DRUGS (2)
  1. EFFEXOR [Suspect]
     Dosage: DOSE TAPERING IN STEPS OF 75 MG
     Dates: end: 20110101
  2. EFFEXOR [Suspect]
     Dosage: 300 MG, 1X/DAY

REACTIONS (9)
  - RIB FRACTURE [None]
  - ARRHYTHMIA [None]
  - DRUG WITHDRAWAL SYNDROME [None]
  - MYALGIA [None]
  - FOOT FRACTURE [None]
  - DIARRHOEA [None]
  - VOMITING [None]
  - TOOTH DISORDER [None]
  - AGITATION [None]
